FAERS Safety Report 26047971 (Version 1)
Quarter: 2025Q4

REPORT INFORMATION
  Report Type: Spontaneous
  Country: EU (occurrence: EU)
  Receive Date: 20251114
  Receipt Date: 20251114
  Transmission Date: 20260118
  Serious: Yes (Hospitalization, Other)
  Sender: DAITO PHARMACEUTICALS
  Company Number: EU-Daito Pharmaceutical Co., Ltd.-2188555

PATIENT
  Age: 13 Year
  Sex: Female

DRUGS (4)
  1. METHOTREXATE SODIUM [Suspect]
     Active Substance: METHOTREXATE SODIUM
     Indication: Osteosarcoma
  2. METHOTREXATE SODIUM [Suspect]
     Active Substance: METHOTREXATE SODIUM
     Indication: Product use in unapproved indication
  3. DOXORUBICIN [Concomitant]
     Active Substance: DOXORUBICIN
  4. CISPLATIN [Concomitant]
     Active Substance: CISPLATIN

REACTIONS (4)
  - Acute kidney injury [Recovered/Resolved]
  - Product use in unapproved indication [Unknown]
  - Overdose [Unknown]
  - Nephropathy toxic [Recovered/Resolved]
